FAERS Safety Report 5105091-0 (Version None)
Quarter: 2006Q3

REPORT INFORMATION
  Report Type: 
  Country: None (occurrence: None)
  Receive Date: 20060914
  Receipt Date: 20060908
  Transmission Date: 20061208
  Serious: Yes (Hospitalization)
  Sender: FDA-Public Use
  Company Number: US-ABBOTT-06P-163-0343505-00

PATIENT
  Sex: Male
  Weight: 118.2 kg

DRUGS (4)
  1. HUMIRA [Suspect]
     Indication: RHEUMATOID ARTHRITIS
     Route: 058
     Dates: start: 20060301, end: 20060601
  2. HUMIRA [Suspect]
     Route: 058
     Dates: start: 20060701, end: 20060801
  3. LEVOTHYROXINE SODIUM [Concomitant]
     Indication: AUTOIMMUNE THYROIDITIS
  4. SETRALINE HCL [Concomitant]
     Indication: MOOD ALTERED

REACTIONS (6)
  - BLOOD URINE PRESENT [None]
  - COUGH [None]
  - DIVERTICULITIS [None]
  - DYSPNOEA [None]
  - INJECTION SITE IRRITATION [None]
  - LUNG DISORDER [None]
